FAERS Safety Report 5826562-5 (Version None)
Quarter: 2008Q3

REPORT INFORMATION
  Report Type: 
  Country: None (occurrence: None)
  Receive Date: 20080729
  Receipt Date: 20080721
  Transmission Date: 20090109
  Serious: Yes (Hospitalization)
  Sender: FDA-Public Use
  Company Number: US-ELI_LILLY_AND_COMPANY-US200807004140

PATIENT
  Age: 67 Year
  Sex: Male
  Weight: 115 kg

DRUGS (2)
  1. BYETTA [Suspect]
     Indication: TYPE 2 DIABETES MELLITUS
     Dosage: 10 UG, 2/D
     Route: 058
     Dates: start: 20080501
  2. INSULIN [Concomitant]
     Indication: DIABETES MELLITUS
     Dosage: 30 U, 2/D

REACTIONS (1)
  - JOINT INJURY [None]
